FAERS Safety Report 6983195-5 (Version None)
Quarter: 2010Q3

REPORT INFORMATION
  Report Type: 
  Country: None (occurrence: None)
  Receive Date: 20100914
  Receipt Date: 20100803
  Transmission Date: 20110219
  Serious: Yes (Other)
  Sender: FDA-Public Use
  Company Number: US-PFIZER INC-2010065745

PATIENT
  Sex: Female
  Weight: 81 kg

DRUGS (3)
  1. LYRICA [Suspect]
     Indication: FIBROMYALGIA
     Dosage: 150 MG, 2X/DAY
     Route: 048
     Dates: start: 20100301
  2. TOPAMAX [Concomitant]
     Indication: MIGRAINE
     Dosage: 200 MG, DAILY
  3. BUSPAR [Concomitant]
     Dosage: UNK

REACTIONS (4)
  - AMNESIA [None]
  - BURNING SENSATION [None]
  - CONFUSIONAL STATE [None]
  - MUSCULAR WEAKNESS [None]
